FAERS Safety Report 18990676 (Version 1)
Quarter: 2021Q1

REPORT INFORMATION
  Report Type: Spontaneous
  Country: RO (occurrence: RO)
  Receive Date: 20210310
  Receipt Date: 20210310
  Transmission Date: 20210420
  Serious: Yes (Other)
  Sender: FDA-Public Use
  Company Number: RO-AMGEN-ROUSP2021032530

PATIENT
  Age: 49 Year

DRUGS (3)
  1. OXALIPLATIN. [Concomitant]
     Active Substance: OXALIPLATIN
     Dosage: UNK
  2. XELODA [Suspect]
     Active Substance: CAPECITABINE
     Indication: PRODUCT USED FOR UNKNOWN INDICATION
     Dosage: WITH BEVACIZUMAB (14 DAYS + 7 PAUSE)
     Route: 048
  3. BEVACIZUMAB. [Suspect]
     Active Substance: BEVACIZUMAB
     Indication: PRODUCT USED FOR UNKNOWN INDICATION
     Dosage: WITH CAPECITABINE (14 DAYS + 7 PAUSE)
     Route: 065

REACTIONS (6)
  - Hepatectomy [Unknown]
  - Hepatic mass [Unknown]
  - Haemangioma of liver [Unknown]
  - Liver disorder [Unknown]
  - Metastases to liver [Unknown]
  - Nodule [Unknown]
